FAERS Safety Report 5330983-7 (Version None)
Quarter: 2007Q2

REPORT INFORMATION
  Report Type: 
  Country: None (occurrence: None)
  Receive Date: 20070522
  Receipt Date: 20070511
  Transmission Date: 20071010
  Serious: Yes (Other)
  Sender: FDA-Public Use
  Company Number: GB-ROCHE-498349

PATIENT
  Age: 42 Year
  Sex: Male

DRUGS (2)
  1. CAPECITABINE [Suspect]
     Indication: DRUG USE FOR UNKNOWN INDICATION
     Route: 065
  2. ELOXATIN [Suspect]
     Indication: DRUG USE FOR UNKNOWN INDICATION
     Route: 041

REACTIONS (3)
  - ANAPHYLACTOID REACTION [None]
  - CHEST PAIN [None]
  - MUSCLE SPASMS [None]
